FAERS Safety Report 6503890-1 (Version None)
Quarter: 2009Q4

REPORT INFORMATION
  Report Type: 
  Country: None (occurrence: None)
  Receive Date: 20091217
  Receipt Date: 20091210
  Transmission Date: 20100525
  Serious: Yes (Other)
  Sender: FDA-Public Use
  Company Number: B0616322A

PATIENT
  Sex: Male

DRUGS (12)
  1. AVODART [Suspect]
     Indication: DRUG USE FOR UNKNOWN INDICATION
     Route: 048
     Dates: start: 20090909, end: 20090920
  2. METFORMIN HCL [Concomitant]
  3. COUMADIN [Concomitant]
  4. DIURESIX [Concomitant]
  5. CARDICOR [Concomitant]
  6. UNKNOWN MEDICATION [Concomitant]
  7. PRETERAX [Concomitant]
  8. OMNIC [Concomitant]
  9. THEO-DUR [Concomitant]
  10. VENTOLIN [Concomitant]
  11. FOSTER [Concomitant]
  12. SPIRIVA [Concomitant]

REACTIONS (3)
  - ANGIOEDEMA [None]
  - DRY THROAT [None]
  - NASAL OEDEMA [None]
